FAERS Safety Report 9475467 (Version 1)
Quarter: 2013Q3

REPORT INFORMATION
  Report Type: Report from Study
  Country: IN (occurrence: IN)
  Receive Date: 20130826
  Receipt Date: 20130826
  Transmission Date: 20140515
  Serious: Yes (Death)
  Sender: FDA-Public Use
  Company Number: IN-ROCHE-1265878

PATIENT
  Age: 70 Year
  Sex: Female
  Weight: 50 kg

DRUGS (2)
  1. EXXURA [Suspect]
     Indication: HEPATITIS C
     Dosage: WEEKLY ONCE
     Route: 058
     Dates: start: 20130719
  2. COPEGUS [Suspect]
     Indication: CHRONIC HEPATITIS C
     Dosage: DAILY 4 CAPSULES
     Route: 048
     Dates: start: 20130719

REACTIONS (1)
  - Myocardial infarction [Fatal]
